FAERS Safety Report 25383169 (Version 1)
Quarter: 2025Q2

REPORT INFORMATION
  Report Type: Spontaneous
  Country: US (occurrence: US)
  Receive Date: 20250602
  Receipt Date: 20250602
  Transmission Date: 20250716
  Serious: Yes (Other)
  Sender: ASSERTIO THERAPEUTICS
  Company Number: US-ASSERTIO THERAPEUTICS, INC.-US-2025AST000194

PATIENT
  Sex: Male

DRUGS (21)
  1. CLOBAZAM [Suspect]
     Active Substance: CLOBAZAM
     Indication: Status epilepticus
     Route: 065
  2. LEVETIRACETAM [Suspect]
     Active Substance: LEVETIRACETAM
     Indication: Status epilepticus
     Route: 065
  3. LACOSAMIDE [Suspect]
     Active Substance: LACOSAMIDE
     Indication: Status epilepticus
     Route: 065
  4. FOSPHENYTOIN [Suspect]
     Active Substance: FOSPHENYTOIN
     Indication: Status epilepticus
     Route: 065
  5. PERAMPANEL [Suspect]
     Active Substance: PERAMPANEL
     Indication: Status epilepticus
     Route: 065
  6. BRIVARACETAM [Suspect]
     Active Substance: BRIVARACETAM
     Indication: Status epilepticus
     Route: 065
  7. CENOBAMATE [Suspect]
     Active Substance: CENOBAMATE
     Indication: Status epilepticus
     Route: 065
  8. FELBAMATE [Suspect]
     Active Substance: FELBAMATE
     Indication: Status epilepticus
     Route: 065
  9. GANAXOLONE [Suspect]
     Active Substance: GANAXOLONE
     Indication: Status epilepticus
     Route: 065
  10. MIDAZOLAM [Suspect]
     Active Substance: MIDAZOLAM
     Indication: Sedation
     Route: 042
  11. PENTOBARBITAL [Suspect]
     Active Substance: PENTOBARBITAL
     Indication: Medical induction of coma
     Route: 042
  12. KETAMINE [Suspect]
     Active Substance: KETAMINE
     Indication: Status epilepticus
     Route: 042
  13. METHYLPREDNISOLONE [Suspect]
     Active Substance: METHYLPREDNISOLONE
     Indication: Immunomodulatory therapy
     Route: 042
  14. HUMAN IMMUNOGLOBULIN G [Suspect]
     Active Substance: HUMAN IMMUNOGLOBULIN G
     Indication: Immunomodulatory therapy
  15. ANAKINRA [Suspect]
     Active Substance: ANAKINRA
     Indication: Immunomodulatory therapy
     Dosage: 4 MG/KG, QD, MG/KG/DAY
     Route: 065
  16. ANAKINRA [Suspect]
     Active Substance: ANAKINRA
     Dosage: 8 MG/KG, QD, MG/KG/DAY
     Route: 065
  17. TOCILIZUMAB [Suspect]
     Active Substance: TOCILIZUMAB
     Indication: Immunomodulatory therapy
     Route: 065
  18. TOCILIZUMAB [Suspect]
     Active Substance: TOCILIZUMAB
     Route: 065
  19. TOCILIZUMAB [Suspect]
     Active Substance: TOCILIZUMAB
     Route: 065
  20. BARICITINIB [Suspect]
     Active Substance: BARICITINIB
     Indication: Immunomodulatory therapy
     Dosage: 4 MILLIGRAM, QD
     Route: 065
  21. BARICITINIB [Suspect]
     Active Substance: BARICITINIB
     Dosage: 2 MILLIGRAM, QD, NEARLY 12 MONTHS
     Route: 065

REACTIONS (5)
  - Drug-induced liver injury [Unknown]
  - Bacteraemia [Unknown]
  - Tracheitis [Unknown]
  - Urinary tract infection bacterial [Unknown]
  - Pneumonia [Unknown]
